FAERS Safety Report 24372147 (Version 1)
Quarter: 2024Q3

REPORT INFORMATION
  Report Type: Spontaneous
  Country: US (occurrence: US)
  Receive Date: 20240927
  Receipt Date: 20240927
  Transmission Date: 20241017
  Serious: Yes (Life-Threatening, Other)
  Sender: PFIZER
  Company Number: US-PFIZER INC-PV202400124204

PATIENT
  Age: 62 Year
  Sex: Male

DRUGS (2)
  1. TRANEXAMIC ACID [Suspect]
     Active Substance: TRANEXAMIC ACID
     Indication: Haemorrhage
     Dosage: 2 G
     Route: 042
  2. TRANEXAMIC ACID [Suspect]
     Active Substance: TRANEXAMIC ACID
     Indication: Haemorrhage
     Dosage: 48 G (VIA IRRIGATION LOCALLY DURING THE PROCEDURE)
     Route: 061

REACTIONS (2)
  - Status epilepticus [Recovered/Resolved]
  - Off label use [Unknown]
